FAERS Safety Report 11330417 (Version 1)
Quarter: 2015Q3

REPORT INFORMATION
  Report Type: Spontaneous
  Country: FI (occurrence: FI)
  Receive Date: 20150803
  Receipt Date: 20150803
  Transmission Date: 20151125
  Serious: Yes (Other)
  Sender: FDA-Public Use
  Company Number: FI-WATSON-2015-16023

PATIENT
  Age: 46 Year
  Sex: Female

DRUGS (7)
  1. PREGABALIN. [Concomitant]
     Active Substance: PREGABALIN
     Indication: PRODUCT USED FOR UNKNOWN INDICATION
     Dosage: 450 MG DAILY, STABLE DOSE
     Route: 065
  2. ETORICOXIB [Concomitant]
     Active Substance: ETORICOXIB
     Indication: PRODUCT USED FOR UNKNOWN INDICATION
     Dosage: STABLE DOSE
     Route: 065
  3. LEVETIRACETAM (UNKNOWN) [Suspect]
     Active Substance: LEVETIRACETAM
     Indication: EPILEPSY
     Dosage: 2000 MG, DAILY
     Route: 065
  4. TRAMADOL. [Concomitant]
     Active Substance: TRAMADOL
     Indication: PAIN
     Dosage: 200 MG, DAILY
     Route: 065
  5. TRAMADOL. [Concomitant]
     Active Substance: TRAMADOL
     Dosage: 400 MG, DAILY
     Route: 065
  6. LEVOTHYROXINE (UNKNOWN) [Suspect]
     Active Substance: LEVOTHYROXINE
     Indication: HYPOTHYROIDISM
     Dosage: 0.4 MG, DAILY
     Route: 065
  7. LEVOTHYROXINE (UNKNOWN) [Suspect]
     Active Substance: LEVOTHYROXINE
     Dosage: 0.2 MG, DAILY
     Route: 065

REACTIONS (1)
  - Hyperthyroidism [Recovered/Resolved]
